FAERS Safety Report 9215667 (Version 1)
Quarter: 2013Q2

REPORT INFORMATION
  Report Type: Spontaneous
  Country: US (occurrence: US)
  Receive Date: 20130408
  Receipt Date: 20130408
  Transmission Date: 20140414
  Serious: No
  Sender: FDA-Public Use
  Company Number: US-BIOGENIDEC-2009BI010732

PATIENT
  Age: 48 Year
  Sex: Female

DRUGS (3)
  1. AVONEX [Suspect]
     Indication: MULTIPLE SCLEROSIS
     Route: 030
     Dates: start: 20060828, end: 20090601
  2. CYMBALTA [Concomitant]
     Indication: NEURALGIA
     Route: 048
  3. IBUPROFEN [Concomitant]
     Indication: PREMEDICATION
     Route: 048

REACTIONS (9)
  - Gait disturbance [Recovered/Resolved]
  - Frustration [Recovered/Resolved]
  - Multiple sclerosis [Recovered/Resolved]
  - Influenza like illness [Recovered/Resolved]
  - Urticaria [Not Recovered/Not Resolved]
  - Anxiety [Recovered/Resolved]
  - Myalgia [Recovered/Resolved]
  - Liver function test abnormal [Recovered/Resolved]
  - Pain in extremity [Recovered/Resolved]
